FAERS Safety Report 7417058-8 (Version None)
Quarter: 2011Q2

REPORT INFORMATION
  Report Type: 
  Country: None (occurrence: None)
  Receive Date: 20110415
  Receipt Date: 20081001
  Transmission Date: 20111010
  Serious: Yes (Hospitalization, Other)
  Sender: FDA-Public Use
  Company Number: US-BAYER-2011-005532

PATIENT
  Age: 55 Year
  Sex: Female
  Weight: 86.4 kg

DRUGS (24)
  1. CEFAZOLIN [Concomitant]
     Dosage: 500 MG, UNK
     Route: 042
     Dates: start: 19971114
  2. HEPARIN [Concomitant]
     Dosage: 30000 U, UNK
     Route: 042
     Dates: start: 19971114
  3. TRASYLOL [Suspect]
     Indication: AORTIC VALVE REPLACEMENT
     Dosage: 1 ML, INITIAL DOSE
     Route: 042
     Dates: start: 19971114
  4. CALCIUM CHLORIDE [Concomitant]
     Dosage: UNK
     Route: 042
     Dates: start: 19971114
  5. CARDIOPLEGIA [Concomitant]
     Dosage: UNK
     Route: 042
     Dates: start: 19971114
  6. ISOLYTE [Concomitant]
     Dosage: 2 L, UNK
     Route: 042
     Dates: start: 19971114
  7. NITROGLYCERIN [Concomitant]
     Route: 060
  8. LANOXIN [Concomitant]
     Dosage: 0.125 MG, QD
     Route: 048
  9. PROZAC [Concomitant]
     Dosage: 20 MG, QD
     Route: 048
  10. ACETYLSALICYLIC ACID SRT [Concomitant]
     Dosage: 325 MG, QD
  11. LIDOCAINE [Concomitant]
     Dosage: UNK
     Route: 042
     Dates: start: 19971114
  12. PLASMA-LYTE 56 AND DEXTROSE 5% IN PLASTIC CONTAINER [Concomitant]
     Dosage: UNK
     Route: 042
     Dates: start: 19971114
  13. ALTACE [Concomitant]
     Dosage: 5 MG, BID
     Route: 048
  14. MAGNESIUM SULFATE [Concomitant]
     Dosage: UNK
     Route: 042
     Dates: start: 19971114
  15. TRASYLOL [Suspect]
     Dosage: 200 ML, PUMP PRIME
     Route: 042
     Dates: start: 19971114
  16. ESTRACE [Concomitant]
     Dosage: 20 MG, QD
     Route: 048
  17. AMICAR [Concomitant]
     Dosage: 0.5 G, UNK
     Route: 042
     Dates: start: 19971114
  18. BLOOD AND RELATED PRODUCTS [Concomitant]
     Dosage: UNK
     Route: 042
     Dates: start: 19971114
  19. ALBUMIN (HUMAN) [Concomitant]
     Dosage: UNK
     Route: 042
     Dates: start: 19971114
  20. MANNITOL [Concomitant]
     Dosage: UNK
     Route: 042
     Dates: start: 19971114
  21. LASIX [Concomitant]
     Dosage: 40 MG, QD
     Route: 048
  22. LESCOL [Concomitant]
     Dosage: 20 MG, QD
     Route: 048
  23. CIMETIDINE [Concomitant]
     Dosage: 400 MG, BID
     Route: 048
  24. VALIUM [Concomitant]
     Dosage: 1 MG, UNK
     Route: 042
     Dates: start: 19971114

REACTIONS (7)
  - INJURY [None]
  - CEREBROVASCULAR ACCIDENT [None]
  - ANXIETY [None]
  - EMOTIONAL DISTRESS [None]
  - STRESS [None]
  - PAIN [None]
  - DEPRESSION [None]
